FAERS Safety Report 16208584 (Version 1)
Quarter: 2019Q2

REPORT INFORMATION
  Report Type: Spontaneous
  Country: JP (occurrence: JP)
  Receive Date: 20190417
  Receipt Date: 20190417
  Transmission Date: 20190711
  Serious: Yes (Death, Hospitalization, Disabling, Other)
  Sender: FDA-Public Use
  Company Number: JP-BAYER-2018-214224

PATIENT
  Age: 76 Year
  Sex: Male

DRUGS (5)
  1. EDOXABAN [Suspect]
     Active Substance: EDOXABAN TOSYLATE
  2. XARELTO [Concomitant]
     Active Substance: RIVAROXABAN
     Indication: PULMONARY EMBOLISM
     Dosage: DAILY DOSE 10 MG
     Route: 048
     Dates: end: 20181113
  3. XARELTO [Concomitant]
     Active Substance: RIVAROXABAN
     Indication: ATRIAL FIBRILLATION
  4. BAYASPIRIN 100 MG [Suspect]
     Active Substance: ASPIRIN
     Indication: CEREBRAL INFARCTION
     Dosage: DAILY DOSE 100 MG
     Route: 048
     Dates: start: 20170313, end: 20181113
  5. XARELTO [Concomitant]
     Active Substance: RIVAROXABAN
     Indication: DEEP VEIN THROMBOSIS

REACTIONS (5)
  - Hemiplegia [None]
  - Respiratory disorder [None]
  - Labelled drug-drug interaction medication error [None]
  - Putamen haemorrhage [Recovered/Resolved with Sequelae]
  - Cardiac failure [None]

NARRATIVE: CASE EVENT DATE: 20181113
